FAERS Safety Report 7037185-7 (Version None)
Quarter: 2010Q4

REPORT INFORMATION
  Report Type: 
  Country: None (occurrence: None)
  Receive Date: 20101011
  Receipt Date: 20100928
  Transmission Date: 20110411
  Serious: Yes (Hospitalization)
  Sender: FDA-Public Use
  Company Number: US-ELI_LILLY_AND_COMPANY-US201005004608

PATIENT
  Age: 62 Year
  Sex: Female

DRUGS (7)
  1. FORTEO [Suspect]
     Indication: OSTEOPOROSIS
     Dosage: 20 UG, DAILY (1/D)
     Route: 058
  2. LEXAPRO [Concomitant]
  3. LEXAPRO [Concomitant]
  4. KLONOPIN [Concomitant]
  5. KLONOPIN [Concomitant]
  6. SEROQUEL [Concomitant]
  7. SEROQUEL [Concomitant]

REACTIONS (5)
  - COMPRESSION FRACTURE [None]
  - FALL [None]
  - FOOT FRACTURE [None]
  - INJECTION SITE HAEMATOMA [None]
  - STERNAL FRACTURE [None]
